FAERS Safety Report 11857111 (Version 3)
Quarter: 2017Q4

REPORT INFORMATION
  Report Type: Spontaneous
  Country: US (occurrence: US)
  Receive Date: 20151221
  Receipt Date: 20171127
  Transmission Date: 20180320
  Serious: Yes (Other)
  Sender: FDA-Public Use
  Company Number: US-PFIZER INC-2015436368

PATIENT
  Age: 64 Year
  Sex: Male
  Weight: 73.94 kg

DRUGS (8)
  1. LYRICA [Suspect]
     Active Substance: PREGABALIN
     Indication: DIABETIC NEUROPATHY
     Dosage: 75 MG, 1X/DAY
  2. LISINOPRIL. [Concomitant]
     Active Substance: LISINOPRIL
     Indication: HYPERTENSION
     Dosage: 10 MG, 1X/DAY
  3. LYRICA [Suspect]
     Active Substance: PREGABALIN
     Dosage: 25 MG, 1X/DAY
  4. METOPROLOL TARTRATE. [Concomitant]
     Active Substance: METOPROLOL TARTRATE
     Indication: HYPERTENSION
     Dosage: 50 MG, 2X/DAY
  5. CLOPIDOGREL [Concomitant]
     Active Substance: CLOPIDOGREL BISULFATE
     Indication: CARDIAC DISORDER
     Dosage: 75 MG, 1X/DAY
  6. LYRICA [Suspect]
     Active Substance: PREGABALIN
     Dosage: 225 MG, DAILY (LYRICA 75MG ONCE IN THE MORNING AND TWO LYRICA 75MG AT NIGHT )
  7. ATORVASTATIN [Concomitant]
     Active Substance: ATORVASTATIN
     Indication: BLOOD PRESSURE ABNORMAL
     Dosage: 40 MG, 1X/DAY
  8. METFORMIN [Concomitant]
     Active Substance: METFORMIN HYDROCHLORIDE
     Indication: DIABETES MELLITUS
     Dosage: UNK

REACTIONS (7)
  - Drug ineffective [Unknown]
  - Pain [Unknown]
  - Insomnia [Unknown]
  - Intentional product use issue [Unknown]
  - Intentional product misuse [Unknown]
  - Myocardial infarction [Unknown]
  - Pain in extremity [Unknown]

NARRATIVE: CASE EVENT DATE: 201611
